FAERS Safety Report 24282523 (Version 2)
Quarter: 2024Q3

REPORT INFORMATION
  Report Type: Spontaneous
  Country: TW (occurrence: TW)
  Receive Date: 20240904
  Receipt Date: 20240916
  Transmission Date: 20241016
  Serious: Yes (Other)
  Sender: TEVA
  Company Number: TW-ABBVIE-5838968

PATIENT
  Age: 56 Year
  Sex: Female
  Weight: 57 kg

DRUGS (8)
  1. ACITRETIN [Suspect]
     Active Substance: ACITRETIN
     Indication: Generalised pustular psoriasis
     Route: 048
     Dates: start: 2011
  2. ACITRETIN [Suspect]
     Active Substance: ACITRETIN
     Indication: Generalised pustular psoriasis
     Route: 048
     Dates: start: 2012, end: 2016
  3. CLOBETASOL [Suspect]
     Active Substance: CLOBETASOL
     Indication: Generalised pustular psoriasis
     Route: 061
     Dates: start: 2012, end: 2016
  4. CLOBETASOL [Suspect]
     Active Substance: CLOBETASOL
     Indication: Generalised pustular psoriasis
     Route: 061
     Dates: start: 2012, end: 2016
  5. CLOBETASOL [Suspect]
     Active Substance: CLOBETASOL
     Indication: Generalised pustular psoriasis
     Route: 061
     Dates: start: 201104, end: 2011
  6. ADALIMUMAB [Suspect]
     Active Substance: ADALIMUMAB
     Indication: Generalised pustular psoriasis
     Dosage: LOADING DOSE
     Route: 065
     Dates: start: 201104, end: 201104
  7. ADALIMUMAB [Suspect]
     Active Substance: ADALIMUMAB
     Indication: Generalised pustular psoriasis
     Dosage: ADMINISTERED EVERY OTHER WEEK
     Route: 065
     Dates: start: 201104, end: 2011
  8. ACETAMINOPHEN [Suspect]
     Active Substance: ACETAMINOPHEN
     Indication: Pyrexia
     Route: 065
     Dates: start: 201104

REACTIONS (5)
  - Rebound effect [Unknown]
  - Adverse drug reaction [Unknown]
  - Off label use [Unknown]
  - Therapeutic product effect incomplete [Unknown]
  - Drug intolerance [Unknown]

NARRATIVE: CASE EVENT DATE: 20110401
